FAERS Safety Report 9542763 (Version 1)
Quarter: 2013Q2

REPORT INFORMATION
  Report Type: Spontaneous
  Country: US (occurrence: None)
  Receive Date: 20130524
  Receipt Date: 20130524
  Transmission Date: 20140414
  Serious: No
  Sender: FDA-Public Use
  Company Number: PHEH2013US000713

PATIENT
  Age: 61 Year
  Sex: Female
  Weight: 81.6 kg

DRUGS (1)
  1. GILENYA (FINGOLIMOD) CAPSULE, 0.5MG [Suspect]
     Indication: MULTIPLE SCLEROSIS
     Route: 048
     Dates: start: 20110802, end: 20130103

REACTIONS (8)
  - Head titubation [None]
  - Dysphonia [None]
  - Muscle spasms [None]
  - Pain in extremity [None]
  - Rash [None]
  - Fatigue [None]
  - Alopecia [None]
  - Somnolence [None]
